FAERS Safety Report 22323746 (Version 1)
Quarter: 2023Q2

REPORT INFORMATION
  Report Type: Spontaneous
  Country: US (occurrence: None)
  Receive Date: 20230513
  Receipt Date: 20230513
  Transmission Date: 20230721
  Serious: Yes (Hospitalization)
  Sender: FDA-Public Use
  Company Number: None

PATIENT
  Sex: Male
  Weight: 59.42 kg

DRUGS (18)
  1. CAPECITABINE [Suspect]
     Active Substance: CAPECITABINE
     Indication: Bile duct cancer
     Dosage: FREQUENCY : TWICE A DAY;?OTHER ROUTE : OR 14 DAYS ON, 7 D OFF;?
     Route: 050
  2. Aspirin [Concomitant]
  3. ATENOLOL [Concomitant]
     Active Substance: ATENOLOL
  4. BRILINTA [Concomitant]
     Active Substance: TICAGRELOR
  5. FINASTERIDE [Concomitant]
     Active Substance: FINASTERIDE
  6. LACTULOSE [Concomitant]
     Active Substance: LACTULOSE
  7. MEGESTROL [Concomitant]
  8. METFORMIN [Concomitant]
     Active Substance: METFORMIN HYDROCHLORIDE
  9. METOPROLOL [Concomitant]
     Active Substance: METOPROLOL
  10. METRONIDAZOLE [Concomitant]
     Active Substance: METRONIDAZOLE
  11. VITAMINS [Concomitant]
     Active Substance: VITAMINS
  12. NOVOLIN R [Concomitant]
     Active Substance: INSULIN HUMAN
  13. NOVOLOG [Concomitant]
     Active Substance: INSULIN ASPART
  14. OXYBUTYNIN [Concomitant]
  15. PAROXETINE [Concomitant]
  16. SILVER SULFADIAZINE [Concomitant]
     Active Substance: SILVER SULFADIAZINE
  17. TAMSULOSIN [Concomitant]
  18. TRAZODONE [Concomitant]

REACTIONS (2)
  - Loss of consciousness [None]
  - Blood glucose abnormal [None]
